FAERS Safety Report 22541081 (Version 1)
Quarter: 2023Q2

REPORT INFORMATION
  Report Type: Spontaneous
  Country: US (occurrence: None)
  Receive Date: 20230609
  Receipt Date: 20230609
  Transmission Date: 20230722
  Serious: No
  Sender: FDA-Public Use
  Company Number: 2023A133440

PATIENT
  Age: 497 Month

DRUGS (1)
  1. FARXIGA [Suspect]
     Active Substance: DAPAGLIFLOZIN PROPANEDIOL
     Route: 048
     Dates: start: 202301

REACTIONS (2)
  - Vulvovaginal pruritus [Unknown]
  - Oral disorder [Unknown]

NARRATIVE: CASE EVENT DATE: 20230501
